FAERS Safety Report 24104357 (Version 1)
Quarter: 2024Q3

REPORT INFORMATION
  Report Type: Report from Study
  Country: MX (occurrence: None)
  Receive Date: 20240717
  Receipt Date: 20240717
  Transmission Date: 20241017
  Serious: Yes (Other)
  Sender: ASTRAZENECA
  Company Number: 2020SE10441

PATIENT
  Age: 27 Month
  Sex: Female
  Weight: 12.5 kg

DRUGS (4)
  1. BUDESONIDE\FORMOTEROL FUMARATE DIHYDRATE [Suspect]
     Active Substance: BUDESONIDE\FORMOTEROL FUMARATE DIHYDRATE
     Indication: Asthma
     Dosage: 80 / 4.5 MCG 1 INHALATION EVERY 12 HOURS FOR 4 MONTHS
     Route: 055
     Dates: start: 201909, end: 201911
  2. BUDESONIDE\FORMOTEROL FUMARATE DIHYDRATE [Suspect]
     Active Substance: BUDESONIDE\FORMOTEROL FUMARATE DIHYDRATE
     Indication: Productive cough
     Dosage: 80 / 4.5 MCG 1 INHALATION EVERY 12 HOURS FOR 4 MONTHS
     Route: 055
     Dates: start: 201909, end: 201911
  3. BUDESONIDE\FORMOTEROL FUMARATE DIHYDRATE [Suspect]
     Active Substance: BUDESONIDE\FORMOTEROL FUMARATE DIHYDRATE
     Indication: Asthma
     Dosage: 80 / 4.5 MCG 1 INHALATION EVERY 12 HOURS FOR 4 MONTHS
     Route: 055
     Dates: start: 20200120
  4. BUDESONIDE\FORMOTEROL FUMARATE DIHYDRATE [Suspect]
     Active Substance: BUDESONIDE\FORMOTEROL FUMARATE DIHYDRATE
     Indication: Productive cough
     Dosage: 80 / 4.5 MCG 1 INHALATION EVERY 12 HOURS FOR 4 MONTHS
     Route: 055
     Dates: start: 20200120

REACTIONS (2)
  - Seizure [Unknown]
  - Off label use [Unknown]

NARRATIVE: CASE EVENT DATE: 20191101
